FAERS Safety Report 9834642 (Version 1)
Quarter: 2014Q1

REPORT INFORMATION
  Report Type: Spontaneous
  Country: US (occurrence: US)
  Receive Date: 20140122
  Receipt Date: 20140122
  Transmission Date: 20141002
  Serious: Yes (Other)
  Sender: FDA-Public Use
  Company Number: US-ABBVIE-14P-163-1190283-00

PATIENT
  Age: 53 Year
  Sex: Male
  Weight: 93.07 kg

DRUGS (15)
  1. HUMIRA [Suspect]
     Indication: RHEUMATOID ARTHRITIS
     Dates: start: 201303
  2. CLOPIDOGREL [Concomitant]
     Indication: OSTEOARTHRITIS
  3. FOLIC ACID [Concomitant]
     Indication: RHEUMATOID ARTHRITIS
  4. LISINOPRIL [Concomitant]
     Indication: HYPERTENSION
  5. METOPROLOL [Concomitant]
     Indication: HYPERTENSION
  6. PANTAPROZOLE [Concomitant]
     Indication: NAUSEA
  7. METHOTREXATE [Concomitant]
     Indication: RHEUMATOID ARTHRITIS
  8. SIMVASTATIN [Concomitant]
     Indication: BLOOD CHOLESTEROL INCREASED
  9. PEROXICAM [Concomitant]
     Indication: PRODUCT USED FOR UNKNOWN INDICATION
  10. CLONAZEPAM [Concomitant]
     Indication: RESTLESS LEGS SYNDROME
  11. HYDROXYCHLOROQUINE [Concomitant]
     Indication: RHEUMATOID ARTHRITIS
  12. PREDNISONE [Concomitant]
     Indication: RHEUMATOID ARTHRITIS
  13. ASPIRIN [Concomitant]
     Indication: CORONARY ARTERY BYPASS
  14. MULTIVITAMIN [Concomitant]
     Indication: PRODUCT USED FOR UNKNOWN INDICATION
  15. CITRICAL WITH VITAMIN D [Concomitant]
     Indication: VITAMIN SUPPLEMENTATION

REACTIONS (5)
  - Local swelling [Not Recovered/Not Resolved]
  - Pain in extremity [Not Recovered/Not Resolved]
  - Blood blister [Recovered/Resolved]
  - Nail infection [Not Recovered/Not Resolved]
  - Fungal skin infection [Not Recovered/Not Resolved]
